FAERS Safety Report 6716573-X (Version None)
Quarter: 2010Q2

REPORT INFORMATION
  Report Type: 
  Country: None (occurrence: None)
  Receive Date: 20100507
  Receipt Date: 20100428
  Transmission Date: 20101027
  Serious: Yes (Disabling)
  Sender: FDA-Public Use
  Company Number: CA-AMGEN-QUU409046

PATIENT
  Age: 46 Year
  Sex: Male
  Weight: 122.6 kg

DRUGS (4)
  1. ENBREL [Suspect]
     Indication: DRUG USE FOR UNKNOWN INDICATION
  2. ALTACE [Concomitant]
  3. LIPIDIL [Concomitant]
  4. METFORMIN [Concomitant]

REACTIONS (4)
  - HYPERSENSITIVITY [None]
  - RASH GENERALISED [None]
  - SKIN EXFOLIATION [None]
  - SYSTEMIC LUPUS ERYTHEMATOSUS RASH [None]
